FAERS Safety Report 15827581 (Version 1)
Quarter: 2019Q1

REPORT INFORMATION
  Report Type: Spontaneous
  Country: US (occurrence: US)
  Receive Date: 20190115
  Receipt Date: 20190115
  Transmission Date: 20190417
  Serious: No
  Sender: FDA-Public Use
  Company Number: US-ANIPHARMA-2018-US-009820

PATIENT
  Age: 22 Year
  Sex: Female
  Weight: 45.36 kg

DRUGS (3)
  1. FLUVOXAMINE MALEATE 50 MG [Suspect]
     Active Substance: FLUVOXAMINE MALEATE
     Indication: PRODUCT USED FOR UNKNOWN INDICATION
     Dosage: 1 TAB PO
     Route: 048
     Dates: start: 201805
  2. GABAPENTIN. [Concomitant]
     Active Substance: GABAPENTIN
  3. LAMICTAL [Concomitant]
     Active Substance: LAMOTRIGINE

REACTIONS (5)
  - Blood urine present [Unknown]
  - Urine abnormality [Unknown]
  - Platelet morphology abnormal [Unknown]
  - Platelet disorder [Unknown]
  - Rash [Recovering/Resolving]

NARRATIVE: CASE EVENT DATE: 20180607
